FAERS Safety Report 11209980 (Version 1)
Quarter: 2015Q2

REPORT INFORMATION
  Report Type: Spontaneous
  Country: US (occurrence: US)
  Receive Date: 20150622
  Receipt Date: 20150622
  Transmission Date: 20150821
  Serious: No
  Sender: FDA-Public Use
  Company Number: US-ASTELLAS-2014US015115

PATIENT
  Age: 66 Year
  Sex: Female

DRUGS (4)
  1. VESICARE [Suspect]
     Active Substance: SOLIFENACIN SUCCINATE
     Indication: PRODUCT USED FOR UNKNOWN INDICATION
     Route: 065
     Dates: start: 2014, end: 2014
  2. VESICARE [Suspect]
     Active Substance: SOLIFENACIN SUCCINATE
     Route: 048
     Dates: start: 2014
  3. VESICARE [Suspect]
     Active Substance: SOLIFENACIN SUCCINATE
     Route: 065
     Dates: start: 201410, end: 2014
  4. VESICARE [Suspect]
     Active Substance: SOLIFENACIN SUCCINATE
     Route: 065
     Dates: start: 20140913, end: 201410

REACTIONS (3)
  - Confusional state [Unknown]
  - Anxiety [Unknown]
  - Dysgeusia [Unknown]

NARRATIVE: CASE EVENT DATE: 2014
